FAERS Safety Report 8387383-5 (Version None)
Quarter: 2012Q2

REPORT INFORMATION
  Report Type: 
  Country: None (occurrence: None)
  Receive Date: 20120525
  Receipt Date: 20120516
  Transmission Date: 20120825
  Serious: Yes (Other)
  Sender: FDA-Public Use
  Company Number: US-ROCHE-798746

PATIENT
  Sex: Female
  Weight: 50.848 kg

DRUGS (1)
  1. ACCUTANE [Suspect]
     Indication: ACNE
     Route: 065
     Dates: start: 19971001, end: 19980301

REACTIONS (4)
  - INFLAMMATORY BOWEL DISEASE [None]
  - PROCTITIS [None]
  - CROHN'S DISEASE [None]
  - ANXIETY [None]
